FAERS Safety Report 6065224-9 (Version None)
Quarter: 2009Q1

REPORT INFORMATION
  Report Type: 
  Country: None (occurrence: None)
  Receive Date: 20090204
  Receipt Date: 20090126
  Transmission Date: 20090719
  Serious: Yes (Hospitalization)
  Sender: FDA-Public Use
  Company Number: PHHY2009FR00479

PATIENT
  Age: 35 Year
  Sex: Male

DRUGS (5)
  1. GLEEVEC [Suspect]
     Indication: CHRONIC MYELOID LEUKAEMIA
     Dosage: 100 MG/DAY
     Dates: start: 20080401
  2. GLEEVEC [Suspect]
     Dosage: 400 MG/DAY
     Dates: start: 20081101
  3. GLEEVEC [Suspect]
     Dosage: 100 MG/ DAY
  4. GLEEVEC [Suspect]
     Dosage: 400 MG/ DAY
     Dates: start: 20081201, end: 20090101
  5. CYCLOSPORINE [Suspect]
     Indication: RENAL TRANSPLANT
     Dosage: UNK
     Dates: start: 19910101

REACTIONS (2)
  - ENCEPHALITIS [None]
  - EPILEPSY [None]
